FAERS Safety Report 8282228-6 (Version None)
Quarter: 2012Q2

REPORT INFORMATION
  Report Type: 
  Country: None (occurrence: None)
  Receive Date: 20120413
  Receipt Date: 20120404
  Transmission Date: 20120825
  Serious: Yes (Death)
  Sender: FDA-Public Use
  Company Number: US-PFIZER INC-2011311121

PATIENT
  Age: 53 Year
  Sex: Male

DRUGS (2)
  1. OXYCODONE HCL [Suspect]
     Dosage: UNK
  2. COCAINE [Suspect]
     Dosage: UNK

REACTIONS (1)
  - INTENTIONAL DRUG MISUSE [None]
